FAERS Safety Report 16066189 (Version 1)
Quarter: 2019Q2

REPORT INFORMATION
  Report Type: Spontaneous
  Country: US (occurrence: US)
  Receive Date: 20190312
  Receipt Date: 20190312
  Transmission Date: 20190711
  Serious: No
  Sender: FDA-Public Use
  Company Number: None

PATIENT
  Age: 55 Year
  Sex: Female
  Weight: 74.25 kg

DRUGS (1)
  1. CLONIDINE HCL 0.2MG [Suspect]
     Active Substance: CLONIDINE
     Indication: BLOOD PRESSURE MEASUREMENT
     Dosage: ?          QUANTITY:1 TABLET(S);?
     Route: 048
     Dates: start: 20190303, end: 20190306

REACTIONS (15)
  - Loss of consciousness [None]
  - Euphoric mood [None]
  - Abdominal pain upper [None]
  - Product substitution issue [None]
  - Blood pressure increased [None]
  - Drooling [None]
  - Myalgia [None]
  - Reflexes abnormal [None]
  - Confusional state [None]
  - Headache [None]
  - Hyperhidrosis [None]
  - Skin odour abnormal [None]
  - Dehydration [None]
  - Dysarthria [None]
  - Urinary incontinence [None]

NARRATIVE: CASE EVENT DATE: 20190304
